FAERS Safety Report 24971688 (Version 2)
Quarter: 2025Q1

REPORT INFORMATION
  Report Type: Spontaneous
  Country: US (occurrence: US)
  Receive Date: 20250214
  Receipt Date: 20250220
  Transmission Date: 20250409
  Serious: No
  Sender: PFIZER
  Company Number: US-PFIZER INC-202500032907

PATIENT
  Age: 68 Year
  Sex: Male

DRUGS (2)
  1. BRAFTOVI [Suspect]
     Active Substance: ENCORAFENIB
     Dosage: 450 MG, DAILY (75 MG, TAKE 6 CAPS DAILY)
     Route: 048
  2. MEKTOVI [Suspect]
     Active Substance: BINIMETINIB
     Dosage: 45 MG, DAILY (15 MG, TAKE 3 TABS DAILY)
     Route: 048

REACTIONS (2)
  - Malaise [Not Recovered/Not Resolved]
  - Fatigue [Unknown]
